FAERS Safety Report 19188657 (Version 5)
Quarter: 2021Q2

REPORT INFORMATION
  Report Type: Other
  Country: JP (occurrence: JP)
  Receive Date: 20210428
  Receipt Date: 20210629
  Transmission Date: 20210717
  Serious: Yes (Death, Life-Threatening)
  Sender: FDA-Public Use
  Company Number: JP-ROCHE-2817569

PATIENT
  Age: 68 Year
  Sex: Female
  Weight: 69.5 kg

DRUGS (7)
  1. SATRALIZUMAB. [Suspect]
     Active Substance: SATRALIZUMAB
     Indication: NEUROMYELITIS OPTICA SPECTRUM DISORDER
     Route: 058
     Dates: start: 20210107, end: 20210204
  2. TACROLIMUS MONOHYDRATE [Suspect]
     Active Substance: TACROLIMUS
     Dosage: LAST DOSE RECEIVED ON 17/APR/2021
     Route: 065
     Dates: start: 20210107
  3. TACROLIMUS MONOHYDRATE [Suspect]
     Active Substance: TACROLIMUS
     Indication: NEUROMYELITIS OPTICA SPECTRUM DISORDER
     Route: 065
  4. SATRALIZUMAB. [Suspect]
     Active Substance: SATRALIZUMAB
     Dosage: LAST DOSE RECEIVED ON 01/APR/2021
     Route: 058
     Dates: start: 20210304
  5. PREDNISOLONE. [Suspect]
     Active Substance: PREDNISOLONE
     Indication: NEUROMYELITIS OPTICA SPECTRUM DISORDER
     Dosage: LAST DOSE RECEIVED ON 18/APR/2021
     Route: 065
     Dates: start: 20210107
  6. ALFAROL [Concomitant]
     Active Substance: ALFACALCIDOL
     Route: 048
  7. OLMETEC [Concomitant]
     Active Substance: OLMESARTAN MEDOXOMIL
     Route: 065

REACTIONS (4)
  - Disseminated intravascular coagulation [Fatal]
  - Pneumococcal infection [Not Recovered/Not Resolved]
  - Nasopharyngitis [Unknown]
  - Septic shock [Fatal]

NARRATIVE: CASE EVENT DATE: 20210416
